FAERS Safety Report 5564965-7 (Version None)
Quarter: 2007Q4

REPORT INFORMATION
  Report Type: 
  Country: None (occurrence: None)
  Receive Date: 20071218
  Receipt Date: 20071210
  Transmission Date: 20080405
  Serious: Yes (Other)
  Sender: FDA-Public Use
  Company Number: B0499842A

PATIENT
  Age: 20 Year
  Sex: Female
  Weight: 35 kg

DRUGS (4)
  1. FORTUM [Suspect]
     Indication: LOWER RESPIRATORY TRACT INFECTION
     Route: 042
     Dates: start: 20071101, end: 20071104
  2. OBRACIN [Concomitant]
     Dosage: 350MG PER DAY
     Route: 042
     Dates: start: 20071101
  3. LASIX [Concomitant]
     Dosage: 30MG THREE TIMES PER DAY
     Route: 042
     Dates: start: 20071102
  4. ENALAPRIL [Concomitant]
     Dosage: 2.5MG TWICE PER DAY
     Route: 048
     Dates: start: 20071103

REACTIONS (2)
  - ACCIDENTAL OVERDOSE [None]
  - CONVULSION [None]
